FAERS Safety Report 10674419 (Version 5)
Quarter: 2016Q1

REPORT INFORMATION
  Report Type: Spontaneous
  Country: US (occurrence: US)
  Receive Date: 20141224
  Receipt Date: 20160113
  Transmission Date: 20160525
  Serious: Yes (Hospitalization, Other)
  Sender: FDA-Public Use
  Company Number: US-PFIZER INC-2014316747

PATIENT
  Age: 45 Year
  Sex: Male
  Weight: 86.17 kg

DRUGS (14)
  1. ZOLOFT [Concomitant]
     Active Substance: SERTRALINE HYDROCHLORIDE
     Dosage: UNK
  2. EPZICOM [Concomitant]
     Active Substance: ABACAVIR SULFATE\LAMIVUDINE
     Dosage: UNK
     Dates: start: 20140424
  3. VIMPAT [Concomitant]
     Active Substance: LACOSAMIDE
     Indication: SEIZURE
     Dosage: 100 MG, 2X/DAY
     Dates: start: 201411
  4. VFEND [Suspect]
     Active Substance: VORICONAZOLE
     Indication: ENCEPHALITIS
     Dosage: 200 MG, 2X/DAY
     Route: 048
  5. VFEND [Suspect]
     Active Substance: VORICONAZOLE
     Indication: ENCEPHALITIS
  6. TIVICAY [Concomitant]
     Active Substance: DOLUTEGRAVIR SODIUM
     Dosage: UNK
     Dates: start: 20140424
  7. VFEND [Suspect]
     Active Substance: VORICONAZOLE
     Indication: MENINGITIS FUNGAL
     Dosage: 450 MG, 2X/DAY
     Route: 048
  8. TRIUMEQ [Concomitant]
     Active Substance: ABACAVIR SULFATE\DOLUTEGRAVIR SODIUM\LAMIVUDINE
     Indication: ANTIVIRAL TREATMENT
     Dosage: 1 DF, DAILY
     Dates: start: 20150212
  9. SEPTRA [Concomitant]
     Active Substance: SULFAMETHOXAZOLE\TRIMETHOPRIM
     Indication: ANTIFUNGAL PROPHYLAXIS
     Dosage: UNK, 1X/DAY (1 DOUBLE STRENGTH)
     Dates: start: 20131031, end: 20150625
  10. VFEND [Suspect]
     Active Substance: VORICONAZOLE
     Indication: MENINGITIS CRYPTOCOCCAL
     Dosage: 450 MG, 2X/DAY
     Route: 042
  11. VFEND [Suspect]
     Active Substance: VORICONAZOLE
     Indication: MENINGITIS CRYPTOCOCCAL
     Dosage: 400 MG, 2X/DAY (1 HR BEFORE OR AFTER MEALS)
     Route: 048
  12. KEPPRA [Concomitant]
     Active Substance: LEVETIRACETAM
     Indication: SEIZURE
     Dosage: 1000 MG, 2X/DAY
  13. TRIDEL [Concomitant]
     Dosage: UNK
     Dates: end: 20140424
  14. BACTRIM DS [Concomitant]
     Active Substance: SULFAMETHOXAZOLE\TRIMETHOPRIM
     Dosage: UNK

REACTIONS (10)
  - Product use issue [Unknown]
  - Alanine aminotransferase increased [Unknown]
  - Meningitis cryptococcal [Unknown]
  - Weight increased [Unknown]
  - Drug level decreased [Unknown]
  - Cholestasis [Unknown]
  - Blood alkaline phosphatase increased [Unknown]
  - CD4 lymphocytes increased [Unknown]
  - Disease recurrence [Unknown]
  - Aspartate aminotransferase abnormal [Unknown]

NARRATIVE: CASE EVENT DATE: 20140529
